FAERS Safety Report 6571624-0 (Version None)
Quarter: 2010Q1

REPORT INFORMATION
  Report Type: 
  Country: None (occurrence: None)
  Receive Date: 20100205
  Receipt Date: 20100122
  Transmission Date: 20100710
  Serious: Yes (Hospitalization)
  Sender: FDA-Public Use
  Company Number: PHHY2008BR34139

PATIENT
  Sex: Female
  Weight: 46 kg

DRUGS (2)
  1. ACLASTA [Suspect]
     Indication: OSTEOPENIA
     Dosage: UNK
     Route: 042
     Dates: start: 20081203
  2. CALTRATE 600 + VITAMIN D [Concomitant]
     Indication: MENOPAUSE
     Dosage: 600 MG, 2 TABLETS DAILY

REACTIONS (9)
  - ANAEMIA [None]
  - BLOOD PRESSURE DECREASED [None]
  - BONE PAIN [None]
  - HAEMORRHAGE [None]
  - INFLUENZA LIKE ILLNESS [None]
  - MYALGIA [None]
  - OSTEOARTHRITIS [None]
  - PROSTHESIS IMPLANTATION [None]
  - WEIGHT DECREASED [None]
